FAERS Safety Report 11438441 (Version 1)
Quarter: 2015Q3

REPORT INFORMATION
  Report Type: Spontaneous
  Country: US (occurrence: US)
  Receive Date: 20150901
  Receipt Date: 20150901
  Transmission Date: 20151125
  Serious: Yes (Hospitalization)
  Sender: FDA-Public Use
  Company Number: US-ROCHE-1158934

PATIENT
  Age: 56 Year
  Sex: Male

DRUGS (3)
  1. TELAPREVIR [Suspect]
     Active Substance: TELAPREVIR
     Indication: HEPATITIS C
     Route: 065
     Dates: start: 20121116
  2. RIBAVIRIN. [Suspect]
     Active Substance: RIBAVIRIN
     Indication: HEPATITIS C
     Route: 065
     Dates: start: 20121116
  3. PEGASYS [Suspect]
     Active Substance: PEGINTERFERON ALFA-2A
     Indication: HEPATITIS C
     Route: 058
     Dates: start: 20121116

REACTIONS (20)
  - Nausea [Unknown]
  - Injection site swelling [Unknown]
  - Diarrhoea [Unknown]
  - Memory impairment [Unknown]
  - Chest pain [Unknown]
  - Disorientation [Unknown]
  - Head injury [Unknown]
  - Blood bilirubin increased [Unknown]
  - Night sweats [Unknown]
  - Blood urine present [Unknown]
  - Asthenia [Unknown]
  - Hyperaesthesia [Unknown]
  - Lethargy [Unknown]
  - Bradyphrenia [Unknown]
  - Insomnia [Unknown]
  - Pain [Unknown]
  - Loss of consciousness [Unknown]
  - Scleral discolouration [Unknown]
  - Headache [Unknown]
  - White blood cell count decreased [Unknown]

NARRATIVE: CASE EVENT DATE: 20121125
